FAERS Safety Report 5501237-0 (Version None)
Quarter: 2007Q4

REPORT INFORMATION
  Report Type: 
  Country: None (occurrence: None)
  Receive Date: 20071029
  Receipt Date: 20071017
  Transmission Date: 20080405
  Serious: Yes (Other)
  Sender: FDA-Public Use
  Company Number: US-PFIZER INC-2007088140

PATIENT
  Sex: Female

DRUGS (3)
  1. DILANTIN [Suspect]
  2. DILANTIN [Suspect]
  3. PHENYTOIN SUSPENSION [Suspect]

REACTIONS (5)
  - ADVERSE DRUG REACTION [None]
  - ASTHENIA [None]
  - DRUG HYPERSENSITIVITY [None]
  - MIGRAINE [None]
  - PETIT MAL EPILEPSY [None]
